FAERS Safety Report 18596803 (Version 2)
Quarter: 2020Q4

REPORT INFORMATION
  Report Type: Report from Study
  Country: US (occurrence: US)
  Receive Date: 20201209
  Receipt Date: 20201217
  Transmission Date: 20210114
  Serious: Yes (Hospitalization)
  Sender: FDA-Public Use
  Company Number: US-ALLERGAN-2046835US

PATIENT
  Sex: Female

DRUGS (1)
  1. VILAZODONE HCL 20MG TAB [Suspect]
     Active Substance: VILAZODONE HYDROCHLORIDE
     Indication: DEPRESSION
     Dosage: 20 MG, QD

REACTIONS (3)
  - Surgery [Unknown]
  - Therapy interrupted [Unknown]
  - Pain [Unknown]
